FAERS Safety Report 8019486-9 (Version None)
Quarter: 2012Q1

REPORT INFORMATION
  Report Type: 
  Country: None (occurrence: None)
  Receive Date: 20120103
  Receipt Date: 20111228
  Transmission Date: 20120608
  Serious: Yes (Hospitalization)
  Sender: FDA-Public Use
  Company Number: PHHY2011NL113069

PATIENT
  Age: 10 Year
  Sex: Male

DRUGS (1)
  1. METHYLPHENIDATE [Suspect]
     Dosage: UNK UKN, UNK

REACTIONS (6)
  - PYREXIA [None]
  - ABDOMINAL PAIN [None]
  - HEADACHE [None]
  - CONSTIPATION [None]
  - ENTEROCOCCAL INFECTION [None]
  - RED BLOOD CELL SEDIMENTATION RATE INCREASED [None]
